FAERS Safety Report 7318382-X (Version None)
Quarter: 2011Q1

REPORT INFORMATION
  Report Type: 
  Country: None (occurrence: None)
  Receive Date: 20110218
  Receipt Date: 20110218
  Transmission Date: 20110831
  Serious: Yes (Hospitalization)
  Sender: FDA-Public Use
  Company Number: None

PATIENT
  Sex: Female
  Weight: 60.782 kg

DRUGS (10)
  1. SABRIL [Suspect]
     Indication: CONVULSION
     Dosage: 1 GRAM BID ORAL
     Route: 048
     Dates: start: 20110122
  2. FRISIUM [Concomitant]
  3. ZONISAMIDE [Concomitant]
  4. DIASTAT [Concomitant]
  5. CALCIUM [Concomitant]
  6. OXCARBAZEPINE [Concomitant]
  7. TOPIRAMATE [Concomitant]
  8. DIFFERIN [Concomitant]
  9. LEXAPRO [Concomitant]
  10. VAGUS NERVE STIMULATOR [Concomitant]

REACTIONS (4)
  - FEMORAL NECK FRACTURE [None]
  - CHEST PAIN [None]
  - FALL [None]
  - CONVULSION [None]
